FAERS Safety Report 13390833 (Version 2)
Quarter: 2017Q2

REPORT INFORMATION
  Report Type: Spontaneous
  Country: US (occurrence: US)
  Receive Date: 20170331
  Receipt Date: 20170425
  Transmission Date: 20170830
  Serious: No
  Sender: FDA-Public Use
  Company Number: PHEH2017US008571

PATIENT
  Age: 44 Year
  Sex: Female

DRUGS (1)
  1. VIVELLE-DOT [Suspect]
     Active Substance: ESTRADIOL
     Indication: HYPOTHYROIDISM
     Route: 062

REACTIONS (6)
  - Feeling abnormal [Unknown]
  - Product adhesion issue [Unknown]
  - Drug ineffective [Unknown]
  - Vision blurred [Unknown]
  - Metrorrhagia [Unknown]
  - Hot flush [Unknown]
